FAERS Safety Report 5243196-4 (Version None)
Quarter: 2007Q1

REPORT INFORMATION
  Report Type: 
  Country: None (occurrence: None)
  Receive Date: 20070221
  Receipt Date: 20070130
  Transmission Date: 20070707
  Serious: Yes (Hospitalization, Other)
  Sender: FDA-Public Use
  Company Number: US-PFIZER INC-2006091406

PATIENT
  Sex: Male

DRUGS (5)
  1. BEXTRA [Suspect]
     Route: 048
     Dates: start: 20040901, end: 20041012
  2. PROTONIX [Concomitant]
     Route: 048
  3. ADVAIR DISKUS 100/50 [Concomitant]
  4. VENTOLIN [Concomitant]
  5. FOLIC ACID [Concomitant]
     Route: 048

REACTIONS (1)
  - STEVENS-JOHNSON SYNDROME [None]
